FAERS Safety Report 5042405-4 (Version None)
Quarter: 2006Q2

REPORT INFORMATION
  Report Type: 
  Country: None (occurrence: None)
  Receive Date: 20060627
  Receipt Date: 20060609
  Transmission Date: 20061013
  Serious: Yes (Other)
  Sender: FDA-Public Use
  Company Number: 06-000549

PATIENT
  Age: 68 Year
  Sex: Male

DRUGS (2)
  1. DOVONEX [Suspect]
     Indication: PSORIASIS
     Dosage: 1 APPLICATION TID, TOPICAL
     Route: 061
     Dates: start: 20040101
  2. DIPROCOL [Concomitant]

REACTIONS (1)
  - BLOOD PRESSURE INCREASED [None]
